FAERS Safety Report 8825696 (Version 2)
Quarter: 2013Q2

REPORT INFORMATION
  Report Type: Report from Study
  Country: DE (occurrence: DE)
  Receive Date: 20121004
  Receipt Date: 20130527
  Transmission Date: 20140414
  Serious: Yes (Hospitalization)
  Sender: FDA-Public Use
  Company Number: DE-PFIZER INC-2012242704

PATIENT
  Age: 67 Year
  Sex: Male
  Weight: 92 kg

DRUGS (11)
  1. GENOTROPIN [Suspect]
     Indication: HYPOPITUITARISM
     Dosage: 0.3 MG, 7/WK
     Route: 058
     Dates: start: 20020828
  2. LEVOTHYROXINE [Concomitant]
     Indication: BLOOD THYROID STIMULATING HORMONE DECREASED
     Dosage: UNK
     Dates: start: 19860101
  3. LEVOTHYROXINE [Concomitant]
     Indication: PRIMARY HYPOTHYROIDISM
  4. CORTISONE ACETATE [Concomitant]
     Indication: BLOOD CORTICOTROPHIN DECREASED
     Dosage: UNK
     Dates: start: 19860101
  5. CALCIUM [Concomitant]
     Indication: OSTEOPOROSIS
     Dosage: UNK
     Dates: start: 19930901
  6. TROMCARDIN [Concomitant]
     Dosage: UNK
     Dates: start: 20000726
  7. UDRIK [Concomitant]
     Dosage: UNK
     Dates: start: 20000726
  8. ASS ^HEXAL^ [Concomitant]
     Dosage: UNK
     Dates: start: 20030331
  9. TESTOSTERONE [Concomitant]
     Indication: BLOOD LUTEINISING HORMONE DECREASED
     Dosage: UNK
     Dates: start: 19860101
  10. TESTOSTERONE [Concomitant]
     Indication: BLOOD FOLLICLE STIMULATING HORMONE DECREASED
  11. TESTOSTERONE [Concomitant]
     Indication: HYPOGONADISM MALE

REACTIONS (1)
  - Gastric disorder [Recovered/Resolved]
